FAERS Safety Report 7674709-0 (Version None)
Quarter: 2011Q3

REPORT INFORMATION
  Report Type: 
  Country: None (occurrence: None)
  Receive Date: 20110810
  Receipt Date: 20101216
  Transmission Date: 20111222
  Serious: Yes (Hospitalization)
  Sender: FDA-Public Use
  Company Number: US-GLAXOSMITHKLINE-A0903536A

PATIENT
  Age: 63 Year
  Sex: Female

DRUGS (1)
  1. AVANDAMET [Suspect]
     Indication: DIABETES MELLITUS
     Route: 048
     Dates: start: 20030411, end: 20100213

REACTIONS (3)
  - LIMB INJURY [None]
  - MYOCARDIAL INFARCTION [None]
  - ILL-DEFINED DISORDER [None]
